FAERS Safety Report 21205317 (Version 1)
Quarter: 2022Q3

REPORT INFORMATION
  Report Type: Spontaneous
  Country: SE (occurrence: SE)
  Receive Date: 20220812
  Receipt Date: 20220812
  Transmission Date: 20221027
  Serious: Yes (Other)
  Sender: FDA-Public Use
  Company Number: SE-BRISTOL-MYERS SQUIBB COMPANY-2022-084242

PATIENT
  Age: 74 Year
  Sex: Female

DRUGS (1)
  1. HYDREA [Suspect]
     Active Substance: HYDROXYUREA
     Indication: Thrombocytopenia
     Dosage: DOSE : UNAVAILABLE;     FREQ : UNAVAILABLE
     Route: 065
     Dates: start: 2014

REACTIONS (3)
  - Lung neoplasm malignant [Unknown]
  - Alopecia [Unknown]
  - Nail disorder [Unknown]

NARRATIVE: CASE EVENT DATE: 20140101
